FAERS Safety Report 15435350 (Version 1)
Quarter: 2018Q3

REPORT INFORMATION
  Report Type: Spontaneous
  Country: US (occurrence: US)
  Receive Date: 20180927
  Receipt Date: 20180927
  Transmission Date: 20181010
  Serious: Yes (Hospitalization, Disabling, Other)
  Sender: FDA-Public Use
  Company Number: US-PURDUE PHARMA-GBR-2018-0059491

PATIENT
  Age: 42 Year
  Sex: Female

DRUGS (1)
  1. NON?PMN MORPHINE SULFATE [Suspect]
     Active Substance: MORPHINE SULFATE
     Indication: PRODUCT USED FOR UNKNOWN INDICATION
     Route: 065

REACTIONS (7)
  - Walking aid user [Recovering/Resolving]
  - Radiculopathy [Recovering/Resolving]
  - Sensory loss [Recovering/Resolving]
  - Catheter site granuloma [Recovering/Resolving]
  - Asthenia [Recovering/Resolving]
  - Urinary retention [Recovering/Resolving]
  - Constipation [Recovering/Resolving]
